FAERS Safety Report 4778422-9 (Version None)
Quarter: 2005Q3

REPORT INFORMATION
  Report Type: 
  Country: None (occurrence: None)
  Receive Date: 20050926
  Receipt Date: 20050913
  Transmission Date: 20060218
  Serious: Yes (Life-Threatening, Hospitalization)
  Sender: FDA-Public Use
  Company Number: FR-JNJFOC-20050704915

PATIENT
  Sex: Female
  Weight: 47 kg

DRUGS (1)
  1. HALDOL [Suspect]
     Indication: PARANOIA
     Dosage: SOLUTION STRENGTH 0.5MG/ML
     Route: 048
     Dates: start: 20050616, end: 20050616

REACTIONS (2)
  - FACIAL BONES FRACTURE [None]
  - TORSADE DE POINTES [None]
